FAERS Safety Report 24785982 (Version 4)
Quarter: 2025Q1

REPORT INFORMATION
  Report Type: Other
  Country: PL (occurrence: PL)
  Receive Date: 20241229
  Receipt Date: 20250228
  Transmission Date: 20250408
  Serious: Yes (Hospitalization, Other)
  Sender: DENTSPLY
  Company Number: PL-DENTSPLY-2024SCDP000364

PATIENT
  Age: 36 Year
  Sex: Female

DRUGS (43)
  1. LIDOCAINE [Suspect]
     Active Substance: LIDOCAINE
     Indication: Toothache
     Route: 061
  2. DOXYLAMINE [Suspect]
     Active Substance: DOXYLAMINE
     Indication: Insomnia
     Route: 065
  3. DOXYLAMINE [Suspect]
     Active Substance: DOXYLAMINE
     Indication: Sleep disorder
  4. ESCITALOPRAM OXALATE [Suspect]
     Active Substance: ESCITALOPRAM OXALATE
     Indication: Depression
     Route: 065
  5. IBUPROFEN [Suspect]
     Active Substance: IBUPROFEN
     Indication: Toothache
     Route: 065
  6. BUPRENORPHINE [Suspect]
     Active Substance: BUPRENORPHINE
     Indication: Toothache
  7. BUPRENORPHINE [Suspect]
     Active Substance: BUPRENORPHINE
  8. DIAZEPAM [Suspect]
     Active Substance: DIAZEPAM
     Indication: Toothache
     Route: 065
  9. DICLOFENAC [Suspect]
     Active Substance: DICLOFENAC
     Indication: Toothache
     Route: 048
  10. DICLOFENAC [Suspect]
     Active Substance: DICLOFENAC
     Route: 061
  11. DICLOFENAC [Suspect]
     Active Substance: DICLOFENAC
     Route: 065
  12. AMOXICILLIN [Suspect]
     Active Substance: AMOXICILLIN
     Indication: Toothache
     Route: 065
  13. CLINDAMYCIN [Suspect]
     Active Substance: CLINDAMYCIN
     Indication: Toothache
     Route: 065
  14. ACETAMINOPHEN\CODEINE PHOSPHATE [Suspect]
     Active Substance: ACETAMINOPHEN\CODEINE PHOSPHATE
     Indication: Toothache
     Route: 065
  15. BENZYDAMINE [Suspect]
     Active Substance: BENZYDAMINE
     Indication: Toothache
     Route: 061
  16. FLURBIPROFEN [Suspect]
     Active Substance: FLURBIPROFEN
     Indication: Toothache
     Route: 061
  17. CHLORHEXIDINE [Suspect]
     Active Substance: CHLORHEXIDINE
     Indication: Toothache
     Route: 061
  18. MORPHINE [Suspect]
     Active Substance: MORPHINE
     Indication: Toothache
     Route: 061
  19. ACETAMINOPHEN [Suspect]
     Active Substance: ACETAMINOPHEN
     Indication: Toothache
     Route: 065
  20. ACETAMINOPHEN [Suspect]
     Active Substance: ACETAMINOPHEN
     Indication: Gingival pain
  21. METAMIZOLE [Suspect]
     Active Substance: METAMIZOLE
     Indication: Gingival pain
     Route: 065
  22. TRAZODONE [Suspect]
     Active Substance: TRAZODONE HYDROCHLORIDE
     Indication: Pain
     Route: 065
  23. ETORICOXIB [Suspect]
     Active Substance: ETORICOXIB
     Indication: Pain
     Route: 065
  24. PREGABALIN [Suspect]
     Active Substance: PREGABALIN
     Indication: Product used for unknown indication
     Route: 065
  25. DULOXETINE [Suspect]
     Active Substance: DULOXETINE
     Indication: Pain
     Route: 065
  26. IPIDACRINE [Concomitant]
     Active Substance: IPIDACRINE
     Indication: Product used for unknown indication
     Route: 065
  27. IPIDACRINE [Concomitant]
     Active Substance: IPIDACRINE
     Route: 065
  28. IPIDACRINE [Concomitant]
     Active Substance: IPIDACRINE
     Route: 065
  29. IPIDACRINE [Concomitant]
     Active Substance: IPIDACRINE
     Route: 065
  30. IPIDACRINE [Concomitant]
     Active Substance: IPIDACRINE
     Route: 065
  31. IPIDACRINE [Concomitant]
     Active Substance: IPIDACRINE
     Route: 065
  32. IPIDACRINE [Concomitant]
     Active Substance: IPIDACRINE
     Route: 065
  33. IPIDACRINE [Concomitant]
     Active Substance: IPIDACRINE
     Route: 065
  34. IPIDACRINE [Concomitant]
     Active Substance: IPIDACRINE
     Route: 065
  35. IPIDACRINE [Concomitant]
     Active Substance: IPIDACRINE
     Route: 065
  36. IPIDACRINE [Concomitant]
     Active Substance: IPIDACRINE
     Route: 065
  37. IPIDACRINE [Concomitant]
     Active Substance: IPIDACRINE
     Route: 065
  38. IPIDACRINE [Concomitant]
     Active Substance: IPIDACRINE
     Route: 065
  39. KETOPROFEN [Concomitant]
     Active Substance: KETOPROFEN
     Indication: Toothache
     Route: 065
  40. KETOPROFEN [Concomitant]
     Active Substance: KETOPROFEN
     Indication: Analgesic therapy
  41. OXYCODONE [Suspect]
     Active Substance: OXYCODONE
     Indication: Toothache
     Route: 065
  42. OXYCODONE [Suspect]
     Active Substance: OXYCODONE
     Indication: Analgesic therapy
  43. OXYCODONE [Suspect]
     Active Substance: OXYCODONE
     Indication: Pain

REACTIONS (9)
  - Toothache [Recovered/Resolved]
  - Hyperaesthesia [Recovered/Resolved]
  - Central pain syndrome [Recovered/Resolved]
  - Dry mouth [Unknown]
  - Drug ineffective [Unknown]
  - Somnolence [Unknown]
  - Drug interaction [Recovered/Resolved]
  - Off label use [Unknown]
  - Gingival pain [None]
